FAERS Safety Report 24079035 (Version 1)
Quarter: 2024Q3

REPORT INFORMATION
  Report Type: Report from Study
  Country: US (occurrence: US)
  Receive Date: 20240711
  Receipt Date: 20240711
  Transmission Date: 20241017
  Serious: Yes (Other)
  Sender: ROCHE
  Company Number: US-ROCHE-10000018177

PATIENT
  Age: 48 Year
  Sex: Male

DRUGS (3)
  1. RITUXAN [Suspect]
     Active Substance: RITUXIMAB
     Indication: Glomerulonephritis
     Route: 065
  2. RITUXAN [Suspect]
     Active Substance: RITUXIMAB
     Indication: Idiopathic intracranial hypertension
  3. RITUXAN [Suspect]
     Active Substance: RITUXIMAB
     Indication: Malignant pleural effusion

REACTIONS (3)
  - Cardiac failure congestive [Unknown]
  - Myopericarditis [Unknown]
  - Hypertension [Unknown]
